FAERS Safety Report 4393682-4 (Version None)
Quarter: 2004Q3

REPORT INFORMATION
  Report Type: 
  Country: None (occurrence: None)
  Receive Date: 20040709
  Receipt Date: 20040521
  Transmission Date: 20050211
  Serious: Yes (Hospitalization)
  Sender: FDA-Public Use
  Company Number: PHHO2004DE07352

PATIENT
  Age: 67 Year
  Sex: Male

DRUGS (3)
  1. ZOLEDRONIC ACID [Suspect]
     Indication: BLADDER CANCER
     Dosage: 4 UNK, UNK
     Dates: start: 20040506
  2. PACLITAXEL [Suspect]
     Indication: BLADDER CANCER
     Dosage: 350 MG, UNK
     Route: 042
     Dates: start: 20040126
  3. GEMCITABINE [Suspect]
     Indication: BLADDER CANCER
     Dosage: 2000 MG, UNK
     Route: 042
     Dates: start: 20040126

REACTIONS (6)
  - ANOREXIA [None]
  - BLOOD CREATININE INCREASED [None]
  - DEHYDRATION [None]
  - GENERAL PHYSICAL HEALTH DETERIORATION [None]
  - HAEMOGLOBIN DECREASED [None]
  - PANCYTOPENIA [None]
